FAERS Safety Report 4649206-7 (Version None)
Quarter: 2005Q2

REPORT INFORMATION
  Report Type: 
  Country: None (occurrence: None)
  Receive Date: 20050331
  Receipt Date: 20050104
  Transmission Date: 20051028
  Serious: No
  Sender: FDA-Public Use
  Company Number: 05P-163-0285343-00

PATIENT
  Age: 50 Year
  Sex: Female
  Weight: 136 kg

DRUGS (12)
  1. HUMIRA [Suspect]
     Indication: RHEUMATOID ARTHRITIS
     Dosage: 40 MG, 1 IN 2 WK, SUBCUTANEOUS
     Route: 058
     Dates: start: 20041011, end: 20041209
  2. ISONIAZID [Concomitant]
  3. PYRIDOXINE HYDROCHLORIDE [Concomitant]
  4. ATORVASTATIN [Concomitant]
  5. ISOSORBIDE [Concomitant]
  6. FOLIC ACID [Concomitant]
  7. METOPROLOL TARTRATE [Concomitant]
  8. FUROSEMIDE [Concomitant]
  9. POTASSIUM CHLORIDE [Concomitant]
  10. ACETYL SALICYLIC ACID USP BAT [Concomitant]
  11. VICODIN [Concomitant]
  12. NAPROXEN SODIUM [Concomitant]

REACTIONS (3)
  - CONDITION AGGRAVATED [None]
  - FUNGAL SKIN INFECTION [None]
  - UPPER RESPIRATORY TRACT INFECTION [None]
